FAERS Safety Report 9752421 (Version 1)
Quarter: 2013Q4

REPORT INFORMATION
  Report Type: Spontaneous
  Country: US (occurrence: US)
  Receive Date: 20131213
  Receipt Date: 20131213
  Transmission Date: 20140711
  Serious: Yes (Other)
  Sender: FDA-Public Use
  Company Number: US-PFIZER INC-2013356817

PATIENT
  Age: 29 Year
  Sex: Female
  Weight: 74.83 kg

DRUGS (2)
  1. PRISTIQ [Suspect]
     Indication: DEPRESSION
     Dosage: 50 MG, 1X/DAY
     Dates: start: 2013, end: 20131205
  2. ALBUTEROL [Concomitant]
     Indication: ASTHMA
     Dosage: UNK, AS NEEDED

REACTIONS (1)
  - Depression [Unknown]
